FAERS Safety Report 8965462 (Version 2)
Quarter: 2012Q4

REPORT INFORMATION
  Report Type: 
  Country: IE (occurrence: IE)
  Receive Date: 20121213
  Receipt Date: 20121218
  Transmission Date: 20130627
  Serious: Yes (Hospitalization)
  Sender: FDA-Public Use
  Company Number: IE-BRISTOL-MYERS SQUIBB COMPANY-17173907

PATIENT
  Age: 42 Year
  Sex: Female

DRUGS (5)
  1. ARIPIPRAZOLE [Suspect]
     Dosage: at night
  2. AMISULPRIDE [Suspect]
     Dosage: initially 400mg
  3. FLUPENTIXOL [Suspect]
     Dosage: initially 200mg
     Route: 030
  4. LITHIUM [Suspect]
     Dosage: at night
  5. OLANZAPINE [Suspect]
     Dosage: at eve

REACTIONS (1)
  - Pulmonary embolism [Recovered/Resolved]
